FAERS Safety Report 15298598 (Version 1)
Quarter: 2018Q3

REPORT INFORMATION
  Report Type: Spontaneous
  Country: FR (occurrence: FR)
  Receive Date: 20180820
  Receipt Date: 20180820
  Transmission Date: 20181010
  Serious: Yes (Death, Congenital Anomaly)
  Sender: FDA-Public Use
  Company Number: FR-NAPPMUNDI-GBR-2017-0047129

PATIENT
  Age: 0 Year
  Sex: Male

DRUGS (1)
  1. OXYNORM [Suspect]
     Active Substance: OXYCODONE HYDROCHLORIDE
     Indication: FIBROMYALGIA
     Dosage: 1 DF, Q4H (5MG STRENGTH)
     Route: 064
     Dates: start: 20150402, end: 20150831

REACTIONS (2)
  - Hydrops foetalis [Fatal]
  - Foetal exposure during pregnancy [Fatal]

NARRATIVE: CASE EVENT DATE: 20150402
